FAERS Safety Report 6916679-6 (Version None)
Quarter: 2010Q3

REPORT INFORMATION
  Report Type: 
  Country: None (occurrence: None)
  Receive Date: 20100810
  Receipt Date: 20100805
  Transmission Date: 20110219
  Serious: Yes (Death)
  Sender: FDA-Public Use
  Company Number: TN-SANOFI-AVENTIS-2010SA046517

PATIENT
  Age: 70 Year
  Sex: Male

DRUGS (9)
  1. CLOPIDOGREL BISULFATE [Suspect]
     Indication: ACUTE CORONARY SYNDROME
     Route: 048
     Dates: start: 20100101, end: 20100628
  2. CLOPIDOGREL BISULFATE [Suspect]
     Indication: ANGIOPLASTY
     Route: 048
     Dates: start: 20100101, end: 20100628
  3. CLOPIDOGREL BISULFATE [Suspect]
     Route: 048
     Dates: start: 20100101, end: 20100628
  4. AMAREL [Concomitant]
     Route: 048
     Dates: end: 20100628
  5. ASPEGIC 1000 [Concomitant]
     Indication: ACUTE CORONARY SYNDROME
     Route: 048
     Dates: end: 20100628
  6. LASIX [Concomitant]
     Indication: HYPERTENSION
     Route: 048
     Dates: end: 20100628
  7. TAHOR [Concomitant]
     Indication: DYSLIPIDAEMIA
     Route: 048
     Dates: end: 20100628
  8. AMLOR [Concomitant]
     Indication: HYPERTENSION
     Route: 048
     Dates: end: 20100628
  9. MOXONIDINE [Concomitant]
     Indication: HYPERTENSION
     Route: 048
     Dates: end: 20100628

REACTIONS (2)
  - PULMONARY FIBROSIS [None]
  - RESPIRATORY FAILURE [None]
